FAERS Safety Report 25064500 (Version 1)
Quarter: 2025Q1

REPORT INFORMATION
  Report Type: Spontaneous
  Country: US (occurrence: None)
  Receive Date: 20250311
  Receipt Date: 20250311
  Transmission Date: 20250408
  Serious: Yes (Other)
  Sender: FDA-CTU
  Company Number: None

PATIENT
  Age: 69 Year
  Sex: Male
  Weight: 81 kg

DRUGS (8)
  1. FINASTERIDE [Suspect]
     Active Substance: FINASTERIDE
     Indication: Prostatic specific antigen increased
     Dosage: OTHER QUANTITY : 1 TABLET(S);?FREQUENCY : DAILY;?
     Route: 048
     Dates: start: 20200105, end: 20220301
  2. DEVICE [Concomitant]
     Active Substance: DEVICE
  3. DIETARY SUPPLEMENT [Concomitant]
     Active Substance: DIETARY SUPPLEMENT
  4. VITAMIN B [Concomitant]
     Active Substance: VITAMIN B
  5. VITAMIN C [Concomitant]
     Active Substance: ASCORBIC ACID
  6. VITAMIN D [Concomitant]
     Active Substance: VITAMIN D NOS
  7. CILOSTAZOL [Concomitant]
     Active Substance: CILOSTAZOL
  8. MULTI [Concomitant]

REACTIONS (1)
  - Type 2 diabetes mellitus [None]

NARRATIVE: CASE EVENT DATE: 20220115
